FAERS Safety Report 8543379-1 (Version None)
Quarter: 2012Q3

REPORT INFORMATION
  Report Type: 
  Country: None (occurrence: None)
  Receive Date: 20120719
  Receipt Date: 20120719
  Transmission Date: 20120928
  Serious: Yes (Other)
  Sender: FDA-Public Use
  Company Number: None

PATIENT
  Age: 86 Year
  Sex: Male
  Weight: 72.5755 kg

DRUGS (1)
  1. AMIODARONE HCL [Suspect]
     Indication: HEART RATE ABNORMAL
     Dosage: 200 MG DAILY ORAL
     Route: 048
     Dates: start: 20110101, end: 20110610

REACTIONS (3)
  - ASTHENIA [None]
  - PHOTOPSIA [None]
  - DIZZINESS [None]
